FAERS Safety Report 4756762-7 (Version None)
Quarter: 2005Q3

REPORT INFORMATION
  Report Type: 
  Country: None (occurrence: None)
  Receive Date: 20050830
  Receipt Date: 20050517
  Transmission Date: 20060218
  Serious: Yes (Other)
  Sender: FDA-Public Use
  Company Number: PHNU2005DE01991

PATIENT
  Sex: Female
  Weight: 91 kg

DRUGS (4)
  1. ZOMETA [Suspect]
     Indication: PLASMACYTOMA
     Dosage: 4 MG, QMO
     Route: 042
     Dates: start: 20030501
  2. MELPHALAN [Concomitant]
     Indication: PLASMACYTOMA
     Route: 065
     Dates: start: 20030501, end: 20031001
  3. PREDNISOLONE [Concomitant]
     Indication: PLASMACYTOMA
     Route: 065
     Dates: start: 20030501, end: 20031001
  4. VINCRISTINE + ADRIAMYCIN + DEXAMETHASONE [Concomitant]
     Indication: PLASMACYTOMA
     Route: 065
     Dates: start: 20040701, end: 20041101

REACTIONS (2)
  - ASEPTIC NECROSIS BONE [None]
  - SEQUESTRECTOMY [None]
